FAERS Safety Report 7475160-9 (Version None)
Quarter: 2011Q2

REPORT INFORMATION
  Report Type: 
  Country: None (occurrence: None)
  Receive Date: 20110505
  Receipt Date: 20110106
  Transmission Date: 20111010
  Serious: Yes (Hospitalization)
  Sender: FDA-Public Use
  Company Number: GB-ACCORD-004440

PATIENT
  Age: 50 Year
  Sex: Male

DRUGS (3)
  1. IRINOTECAN HCL [Suspect]
     Indication: COLON CANCER METASTATIC
     Dosage: 150.00 MG/M2, INTRAVENOUS
     Route: 042
     Dates: start: 20050701
  2. OXALIPLATIN [Suspect]
     Indication: COLON CANCER METASTATIC
     Dates: start: 20050701
  3. FLUOROURACIL [Suspect]
     Indication: COLON CANCER METASTATIC

REACTIONS (5)
  - HYPERAMMONAEMIA [None]
  - HEPATIC FUNCTION ABNORMAL [None]
  - ENCEPHALOPATHY [None]
  - COMA [None]
  - TREMOR [None]
